FAERS Safety Report 7977105-1 (Version None)
Quarter: 2011Q4

REPORT INFORMATION
  Report Type: 
  Country: None (occurrence: None)
  Receive Date: 20111213
  Receipt Date: 20111109
  Transmission Date: 20120403
  Serious: No
  Sender: FDA-Public Use
  Company Number: US-AMGEN-USASP2011058709

PATIENT
  Age: 51 Year
  Sex: Female

DRUGS (6)
  1. FLEXERIL [Concomitant]
  2. IBUPROFEN [Concomitant]
  3. LISINOPRIL [Concomitant]
  4. ENBREL [Suspect]
     Indication: ANKYLOSING SPONDYLITIS
     Dosage: 50 MG, UNK
     Dates: start: 20111104
  5. TYLENOL PM [Concomitant]
  6. SIMVASTATIN [Concomitant]

REACTIONS (1)
  - INJECTION SITE DISCOLOURATION [None]
